FAERS Safety Report 11183835 (Version 1)
Quarter: 2015Q2

REPORT INFORMATION
  Report Type: Spontaneous
  Country: US (occurrence: US)
  Receive Date: 20150612
  Receipt Date: 20150612
  Transmission Date: 20150821
  Serious: Yes (Life-Threatening, Hospitalization)
  Sender: FDA-Public Use
  Company Number: US-BRISTOL-MYERS SQUIBB COMPANY-BMS-2015-036868

PATIENT
  Age: 3 Year
  Sex: Male
  Weight: 12 kg

DRUGS (3)
  1. ETOPOSIDE. [Suspect]
     Active Substance: ETOPOSIDE
     Indication: NEUROBLASTOMA
     Dosage: 116 MG, QD
     Route: 042
     Dates: start: 20150327, end: 20150329
  2. CISPLATIN. [Suspect]
     Active Substance: CISPLATIN
     Indication: NEUROBLASTOMA
     Dosage: 29 MG, QD
     Route: 042
     Dates: start: 20150327, end: 20150330
  3. CRIZOTINIB [Suspect]
     Active Substance: CRIZOTINIB
     Indication: ANAPLASTIC LYMPHOMA KINASE GENE MUTATION
     Dosage: 168 MG, BID
     Route: 048
     Dates: start: 20150406, end: 20150412

REACTIONS (10)
  - Hypotension [Unknown]
  - Neutropenia [Unknown]
  - Colitis [Recovered/Resolved]
  - Hypokalaemia [Unknown]
  - Off label use [Unknown]
  - Device related infection [Recovered/Resolved]
  - Cardiac arrest [Recovering/Resolving]
  - Dehydration [Unknown]
  - Hyponatraemia [Unknown]
  - Vomiting [Unknown]

NARRATIVE: CASE EVENT DATE: 20150410
